FAERS Safety Report 5271369-3 (Version None)
Quarter: 2007Q1

REPORT INFORMATION
  Report Type: 
  Country: None (occurrence: None)
  Receive Date: 20070321
  Receipt Date: 20070309
  Transmission Date: 20070707
  Serious: Yes (Other)
  Sender: FDA-Public Use
  Company Number: DE-SANOFI-SYNTHELABO-A01200702624

PATIENT
  Sex: Female

DRUGS (2)
  1. ISCOVER [Suspect]
     Indication: STENT PLACEMENT
     Dosage: UNK
     Route: 048
  2. ISCOVER [Suspect]
     Indication: ARTERIAL OCCLUSIVE DISEASE
     Dosage: UNK
     Route: 048

REACTIONS (2)
  - CHRONIC LYMPHOCYTIC LEUKAEMIA [None]
  - CONDITION AGGRAVATED [None]
